FAERS Safety Report 7876048-1 (Version None)
Quarter: 2011Q4

REPORT INFORMATION
  Report Type: 
  Country: None (occurrence: None)
  Receive Date: 20111031
  Receipt Date: 20100918
  Transmission Date: 20120403
  Serious: No
  Sender: FDA-Public Use
  Company Number: US-BAYER-201034219NA

PATIENT
  Age: 67 Year
  Sex: Male

DRUGS (5)
  1. LORAZEPAM [Suspect]
     Indication: PANIC ATTACK
     Dosage: UNK
  2. LEVOTHYROXINE SODIUM [Concomitant]
     Indication: HYPOTHYROIDISM
  3. INDOCIN [Concomitant]
     Indication: ARTHRITIS
  4. LEVITRA [Suspect]
     Indication: ERECTILE DYSFUNCTION
     Dosage: 20 MG, PRN
     Dates: start: 20100917
  5. OMEPRAZOLE [Concomitant]
     Indication: GASTROOESOPHAGEAL REFLUX DISEASE

REACTIONS (5)
  - PANIC ATTACK [None]
  - HEADACHE [None]
  - TREMOR [None]
  - FEELING HOT [None]
  - BLOOD PRESSURE INCREASED [None]
